FAERS Safety Report 8828554 (Version 2)
Quarter: 2012Q4

REPORT INFORMATION
  Report Type: Report from Study
  Country: DE (occurrence: DE)
  Receive Date: 20121005
  Receipt Date: 20121012
  Transmission Date: 20130627
  Serious: Yes (Other)
  Sender: FDA-Public Use
  Company Number: DE-AMGEN-DEUCT2012062475

PATIENT
  Age: 54 Year
  Sex: Female
  Weight: 69 kg

DRUGS (6)
  1. ETANERCEPT [Suspect]
     Indication: RHEUMATOID ARTHRITIS
     Dosage: UNK
     Dates: start: 200903, end: 201003
  2. ARAVA [Concomitant]
     Indication: RHEUMATOID ARTHRITIS
     Dosage: UNK
     Dates: start: 200710, end: 20111108
  3. METHOTREXATE [Concomitant]
     Indication: RHEUMATOID ARTHRITIS
     Dosage: UNK
     Dates: start: 200403, end: 200903
  4. METHOTREXATE [Concomitant]
     Dosage: 15 mg, weekly
     Dates: start: 201004, end: 201110
  5. FOLIC ACID [Concomitant]
     Dosage: 5-10mg/week
     Dates: start: 200403, end: 200903
  6. FOLIC ACID [Concomitant]
     Dosage: 5-10mg/week
     Dates: start: 201004

REACTIONS (1)
  - Leukaemia [Not Recovered/Not Resolved]
